FAERS Safety Report 7491806-3 (Version None)
Quarter: 2011Q2

REPORT INFORMATION
  Report Type: 
  Country: None (occurrence: None)
  Receive Date: 20110519
  Receipt Date: 20110512
  Transmission Date: 20111010
  Serious: Yes (Other)
  Sender: FDA-Public Use
  Company Number: US-MERCK-1105USA02148

PATIENT
  Age: 9 Year
  Sex: Male

DRUGS (2)
  1. SINGULAIR [Suspect]
     Indication: RHINITIS
     Route: 048
     Dates: end: 20100101
  2. SINGULAIR [Suspect]
     Indication: HYPERSENSITIVITY
     Route: 048
     Dates: end: 20100101

REACTIONS (1)
  - SUICIDAL IDEATION [None]
